FAERS Safety Report 8390442-4 (Version None)
Quarter: 2012Q2

REPORT INFORMATION
  Report Type: 
  Country: None (occurrence: None)
  Receive Date: 20120529
  Receipt Date: 20120522
  Transmission Date: 20120825
  Serious: Yes (Hospitalization)
  Sender: FDA-Public Use
  Company Number: IT-SANOFI-AVENTIS-2012SA030663

PATIENT
  Age: 73 Year
  Sex: Female

DRUGS (6)
  1. CLOPIDOGREL BISULFATE [Suspect]
     Indication: PLATELET AGGREGATION INHIBITION
     Route: 048
     Dates: start: 20120422, end: 20120429
  2. ATORVASTATIN CALCIUM [Concomitant]
     Dates: start: 20100101, end: 20120502
  3. RAMIPRIL [Concomitant]
     Dates: start: 20120422, end: 20120502
  4. PANTOPRAZOLE [Concomitant]
     Dates: start: 20120422, end: 20120502
  5. ASPIRIN [Concomitant]
     Dates: start: 20100101, end: 20120502
  6. BISOPROLOL FUMARATE [Concomitant]
     Dates: start: 20120422, end: 20120502

REACTIONS (3)
  - RASH GENERALISED [None]
  - PYREXIA [None]
  - DYSPNOEA [None]
